FAERS Safety Report 15898969 (Version 1)
Quarter: 2019Q1

REPORT INFORMATION
  Report Type: Spontaneous
  Country: ES (occurrence: ES)
  Receive Date: 20190201
  Receipt Date: 20190201
  Transmission Date: 20190417
  Serious: Yes (Other)
  Sender: FDA-Public Use
  Company Number: ES-SUN PHARMACEUTICAL INDUSTRIES LTD-2019RR-198024

PATIENT
  Age: 78 Year
  Sex: Female

DRUGS (2)
  1. IRBESARTAN/HYDROCHLOROTHIAZIDE [Suspect]
     Active Substance: HYDROCHLOROTHIAZIDE\IRBESARTAN
     Indication: ARTERIOSCLEROSIS
     Dosage: 300MG/25MG, 1 CADA 24 HORAS
     Route: 048
     Dates: start: 20180731, end: 20190108
  2. IRBESARTAN/HYDROCHLOROTHIAZIDE [Suspect]
     Active Substance: HYDROCHLOROTHIAZIDE\IRBESARTAN
     Dosage: 300MG/12.5MG, 1 CADA 24 HORAS
     Route: 048
     Dates: start: 20180710, end: 20180730

REACTIONS (1)
  - Hyperkalaemia [Unknown]

NARRATIVE: CASE EVENT DATE: 2018
